FAERS Safety Report 12776112 (Version 1)
Quarter: 2016Q3

REPORT INFORMATION
  Report Type: Spontaneous
  Country: US (occurrence: US)
  Receive Date: 20160923
  Receipt Date: 20160923
  Transmission Date: 20161109
  Serious: No
  Sender: FDA-Public Use
  Company Number: US-009507513-1606USA014222

PATIENT
  Sex: Female
  Weight: 53.07 kg

DRUGS (1)
  1. SINEMET [Suspect]
     Active Substance: CARBIDOPA\LEVODOPA
     Indication: PARKINSON^S DISEASE
     Dosage: ONE AND HALF IN THE MORNING, ONE AND HALF IN AFTERNOON.ONE WHOLE BEFORE SHE GO TO BED
     Route: 048

REACTIONS (2)
  - Wrong technique in product usage process [Unknown]
  - Medication error [Unknown]
